FAERS Safety Report 4665544-6 (Version None)
Quarter: 2005Q2

REPORT INFORMATION
  Report Type: 
  Country: None (occurrence: None)
  Receive Date: 20050517
  Receipt Date: 20050504
  Transmission Date: 20051028
  Serious: Yes (Hospitalization)
  Sender: FDA-Public Use
  Company Number: 2005072170

PATIENT
  Age: 58 Year
  Sex: Male
  Weight: 122.4712 kg

DRUGS (5)
  1. BEXTRA [Suspect]
     Indication: ARTHRALGIA
     Dosage: 20 MG (20 MG, 1 IN 1 D), ORAL
     Route: 048
     Dates: start: 20030101
  2. LIPITOR [Suspect]
     Indication: HYPERTENSION
     Dosage: ORAL
     Route: 048
  3. METFORMIN HCL [Concomitant]
  4. GLIBOMET (GLIBENCLAMIDE, METFORMIN HYDROCHLORIDE) [Concomitant]
  5. ACETAMINOPHEN [Concomitant]

REACTIONS (5)
  - ATRIAL FLUTTER [None]
  - COUGH [None]
  - HEART RATE INCREASED [None]
  - HYPERTENSION [None]
  - VITAL FUNCTIONS ABNORMAL [None]
